FAERS Safety Report 4841992-6 (Version None)
Quarter: 2005Q4

REPORT INFORMATION
  Report Type: 
  Country: None (occurrence: None)
  Receive Date: 20051130
  Receipt Date: 20051021
  Transmission Date: 20060501
  Serious: No
  Sender: FDA-Public Use
  Company Number: US-GLAXOSMITHKLINE-A0579193A

PATIENT
  Age: 53 Year
  Sex: Male

DRUGS (5)
  1. WELLBUTRIN XL [Suspect]
     Indication: DEPRESSION
     Dosage: 300MG PER DAY
     Route: 048
     Dates: start: 20051001
  2. PROZAC [Concomitant]
  3. ZELNORM [Concomitant]
  4. ALLEGRA [Concomitant]
  5. TOPAMAX [Concomitant]

REACTIONS (1)
  - ANXIETY [None]
